FAERS Safety Report 21768669 (Version 1)
Quarter: 2022Q4

REPORT INFORMATION
  Report Type: Report from Study
  Country: NL (occurrence: NL)
  Receive Date: 20221222
  Receipt Date: 20221222
  Transmission Date: 20230112
  Serious: Yes (Hospitalization)
  Sender: FDA-Public Use
  Company Number: NL-VER-202200148

PATIENT
  Age: 59 Year
  Sex: Male

DRUGS (1)
  1. TRIPTORELIN PAMOATE [Suspect]
     Active Substance: TRIPTORELIN PAMOATE
     Indication: Prostate cancer
     Dosage: SOLV 2ML,
     Route: 030
     Dates: start: 20210715

REACTIONS (1)
  - Prostate cancer metastatic [Recovering/Resolving]

NARRATIVE: CASE EVENT DATE: 20221118
